FAERS Safety Report 6005883-X (Version None)
Quarter: 2008Q4

REPORT INFORMATION
  Report Type: 
  Country: None (occurrence: None)
  Receive Date: 20081216
  Receipt Date: 20081216
  Transmission Date: 20090506
  Serious: No
  Sender: FDA-Public Use
  Company Number: None

PATIENT
  Sex: Male

DRUGS (1)
  1. TARCEVA [Suspect]
     Dosage: 150MG PO QD PO
     Route: 048

REACTIONS (3)
  - RECURRENT CANCER [None]
  - SCAB [None]
  - SKIN CANCER [None]
